FAERS Safety Report 14787815 (Version 4)
Quarter: 2018Q2

REPORT INFORMATION
  Report Type: Report from Study
  Country: KR (occurrence: KR)
  Receive Date: 20180422
  Receipt Date: 20180531
  Transmission Date: 20180711
  Serious: No
  Sender: FDA-Public Use
  Company Number: KR-AMGEN-KORNI2018053705

PATIENT
  Age: 58 Year
  Sex: Female
  Weight: 65 kg

DRUGS (8)
  1. ASACOL [Concomitant]
     Active Substance: MESALAMINE
     Indication: PROCTITIS ULCERATIVE
     Dosage: 100 ML, AS NECESSARY
     Route: 054
     Dates: start: 20170413
  2. CALCIUM [Concomitant]
     Active Substance: CALCIUM
     Dosage: UNK
  3. MEZAVANT [Concomitant]
     Active Substance: MESALAMINE
     Indication: PROCTITIS ULCERATIVE
     Dosage: 2400 MG, QD
     Route: 048
     Dates: start: 20170216
  4. PENTASA [Concomitant]
     Active Substance: MESALAMINE
     Indication: COLITIS ULCERATIVE
     Dosage: 1 G, QD
     Route: 048
     Dates: start: 20170413
  5. DENOSUMAB [Suspect]
     Active Substance: DENOSUMAB
     Indication: OSTEOPOROSIS POSTMENOPAUSAL
     Dosage: 60 MG, Q6MO
     Route: 058
     Dates: start: 20170517
  6. VITAMIN D [Concomitant]
     Active Substance: CHOLECALCIFEROL
     Dosage: UNK
  7. MONOLITUM FLAS [Concomitant]
     Indication: COLITIS ULCERATIVE
     Dosage: 30 MG, QD
     Route: 048
     Dates: start: 20170413
  8. DICAMAX-D [Concomitant]
     Indication: VITAMIN D DEFICIENCY
     Dosage: 1 DF (CALCIUM CARBONATE 0.25G, CHOLECALCIFEROL CONCENTRATE GMNUIE(AS CHOLECALCIFEROL 1 KI.U), QD
     Route: 048
     Dates: start: 20170517

REACTIONS (1)
  - Sinusitis [Recovered/Resolved]

NARRATIVE: CASE EVENT DATE: 201801
